FAERS Safety Report 5788204-7 (Version None)
Quarter: 2008Q2

REPORT INFORMATION
  Report Type: 
  Country: None (occurrence: None)
  Receive Date: 20080620
  Receipt Date: 20080610
  Transmission Date: 20081010
  Serious: Yes (Hospitalization)
  Sender: FDA-Public Use
  Company Number: 2008BI007803

PATIENT
  Age: 49 Year
  Sex: Female

DRUGS (2)
  1. TYSABRI [Suspect]
     Indication: MULTIPLE SCLEROSIS
     Dosage: 300 MG; QM; IV
     Route: 042
     Dates: start: 20050201
  2. TYSABRI [Suspect]

REACTIONS (7)
  - CATHETER RELATED INFECTION [None]
  - CHRONIC RESPIRATORY FAILURE [None]
  - DECUBITUS ULCER [None]
  - KLEBSIELLA INFECTION [None]
  - PARAPARESIS [None]
  - URINARY TRACT INFECTION [None]
  - URINARY TRACT INFECTION STAPHYLOCOCCAL [None]
